FAERS Safety Report 9056938 (Version 1)
Quarter: 2013Q1

REPORT INFORMATION
  Report Type: Report from Study
  Country: US (occurrence: US)
  Receive Date: 20130131
  Receipt Date: 20130131
  Transmission Date: 20140127
  Serious: No
  Sender: FDA-Public Use
  Company Number: US-ABBOTT-12P-163-0974778-00

PATIENT
  Age: 58 None
  Sex: Male

DRUGS (7)
  1. HUMIRA [Suspect]
     Indication: PSORIATIC ARTHROPATHY
     Route: 058
     Dates: start: 20120428
  2. ALPRAZOLAM [Concomitant]
     Indication: ANXIETY
     Dosage: AT BEDTIME
  3. HYDROXYZINE HCL [Concomitant]
     Indication: PRURITUS
  4. HYDROXYZINE HCL [Concomitant]
     Indication: ANTIALLERGIC THERAPY
  5. IBUPROFEN PM [Concomitant]
     Indication: PAIN
  6. SKELAXIN [Concomitant]
     Route: 048
  7. NASONEX [Concomitant]
     Indication: HYPERSENSITIVITY

REACTIONS (6)
  - Injection site bruising [Unknown]
  - Arthralgia [Not Recovered/Not Resolved]
  - Arthralgia [Unknown]
  - Joint swelling [Recovered/Resolved]
  - Arthralgia [Unknown]
  - Headache [Recovered/Resolved]
